FAERS Safety Report 11247913 (Version 5)
Quarter: 2015Q4

REPORT INFORMATION
  Report Type: Spontaneous
  Country: AU (occurrence: None)
  Receive Date: 20150706
  Receipt Date: 20151201
  Transmission Date: 20160304
  Serious: Yes (Other)
  Sender: FDA-Public Use
  Company Number: ADR-2015-01262

PATIENT
  Age: 23 Year
  Sex: Male

DRUGS (1)
  1. LIORESAL [Suspect]
     Active Substance: BACLOFEN
     Dosage: 1500 MCG/DAY

REACTIONS (5)
  - Somnolence [None]
  - No therapeutic response [None]
  - Muscle spasticity [None]
  - Dystonia [None]
  - Implant site pain [None]
